FAERS Safety Report 9175835 (Version 1)
Quarter: 2013Q1

REPORT INFORMATION
  Report Type: Spontaneous
  Country: BR (occurrence: BR)
  Receive Date: 20130320
  Receipt Date: 20130320
  Transmission Date: 20140127
  Serious: Yes (Other)
  Sender: FDA-Public Use
  Company Number: BR-ROCHE-1203122

PATIENT
  Sex: Male

DRUGS (2)
  1. XOLAIR [Suspect]
     Indication: PRODUCT USED FOR UNKNOWN INDICATION
     Route: 065
     Dates: start: 20120808, end: 201303
  2. XOLAIR [Suspect]
     Route: 065
     Dates: start: 201303

REACTIONS (3)
  - Lip oedema [Recovered/Resolved]
  - Rash erythematous [Recovered/Resolved]
  - Allergy to chemicals [Recovered/Resolved]
